FAERS Safety Report 21513642 (Version 1)
Quarter: 2022Q4

REPORT INFORMATION
  Report Type: Spontaneous
  Country: US (occurrence: None)
  Receive Date: 20221027
  Receipt Date: 20221027
  Transmission Date: 20230113
  Serious: Yes (Hospitalization)
  Sender: FDA-Public Use
  Company Number: None

PATIENT
  Sex: Male
  Weight: 71 kg

DRUGS (4)
  1. FLUOROURACIL [Suspect]
     Active Substance: FLUOROURACIL
     Dates: end: 20221013
  2. CAMPTOSAR [Suspect]
     Active Substance: IRINOTECAN HYDROCHLORIDE
     Dates: end: 20221013
  3. LEUCOVORIN CALCIUM [Suspect]
     Active Substance: LEUCOVORIN CALCIUM
     Dates: end: 20221013
  4. ELOXATIN [Suspect]
     Active Substance: OXALIPLATIN
     Dates: end: 20221013

REACTIONS (10)
  - Pyrexia [None]
  - Nausea [None]
  - Vomiting [None]
  - Urinary incontinence [None]
  - Oropharyngeal pain [None]
  - Gastrooesophageal reflux disease [None]
  - Hepatic enzyme increased [None]
  - Cholangitis [None]
  - Disease recurrence [None]
  - Biliary obstruction [None]

NARRATIVE: CASE EVENT DATE: 20221024
